APPROVED DRUG PRODUCT: TAZAROTENE
Active Ingredient: TAZAROTENE
Strength: 0.05%
Dosage Form/Route: CREAM;TOPICAL
Application: A208662 | Product #002 | TE Code: AB
Applicant: COSETTE PHARMACEUTICALS INC
Approved: Mar 10, 2025 | RLD: No | RS: No | Type: RX